FAERS Safety Report 6326328-6 (Version None)
Quarter: 2009Q3

REPORT INFORMATION
  Report Type: 
  Country: None (occurrence: None)
  Receive Date: 20090821
  Receipt Date: 20090811
  Transmission Date: 20100115
  Serious: Yes (Hospitalization)
  Sender: FDA-Public Use
  Company Number: SYN-0030-2009

PATIENT
  Sex: Female
  Weight: 61.0088 kg

DRUGS (1)
  1. ADCIRCA [Suspect]
     Dosage: 20 MG, SINGLE DOSE; ORAL
     Route: 048
     Dates: start: 20090802

REACTIONS (2)
  - APPENDICITIS [None]
  - BACK PAIN [None]
